FAERS Safety Report 8601264-0 (Version None)
Quarter: 2012Q3

REPORT INFORMATION
  Report Type: 
  Country: None (occurrence: None)
  Receive Date: 20120817
  Receipt Date: 20120810
  Transmission Date: 20120928
  Serious: Yes (Other)
  Sender: FDA-Public Use
  Company Number: PHEH2012US016006

PATIENT
  Sex: Female

DRUGS (15)
  1. ZOMETA [Suspect]
     Dosage: 4 MG, UNK
     Dates: start: 20090701, end: 20100101
  2. BEVACIZUMAB [Concomitant]
  3. PACLITAXEL [Concomitant]
  4. PENICILLIN [Concomitant]
  5. TEMAZEPAM [Concomitant]
  6. GLYBURIDE [Concomitant]
  7. ACTOS [Concomitant]
  8. SIMVASTATIN [Concomitant]
  9. TETRACYCLINE [Concomitant]
  10. EVEROLIMUS [Concomitant]
  11. OXYCODONE HCL [Concomitant]
  12. LEVOTHYROXINE SODIUM [Concomitant]
  13. AMOXICILLIN [Concomitant]
  14. ZOLOFT [Concomitant]
  15. FOSAMAX [Concomitant]

REACTIONS (26)
  - JAW FRACTURE [None]
  - BONE EROSION [None]
  - BONE LESION [None]
  - EXPOSED BONE IN JAW [None]
  - DIABETES MELLITUS [None]
  - POST PROCEDURAL DISCHARGE [None]
  - PARAESTHESIA [None]
  - BONE LOSS [None]
  - OSTEONECROSIS OF JAW [None]
  - OSTEOSCLEROSIS [None]
  - ANXIETY [None]
  - THYROID DISORDER [None]
  - TRIGEMINAL NEURALGIA [None]
  - TOOTHACHE [None]
  - METASTASES TO BONE [None]
  - ASTHMA [None]
  - DEPRESSION [None]
  - ULCER [None]
  - ARTHRALGIA [None]
  - PAIN IN JAW [None]
  - SWELLING [None]
  - IMPAIRED HEALING [None]
  - METASTASES TO SPINE [None]
  - PAIN [None]
  - HYPOAESTHESIA [None]
  - DYSGEUSIA [None]
